FAERS Safety Report 5661435-2 (Version None)
Quarter: 2008Q1

REPORT INFORMATION
  Report Type: 
  Country: None (occurrence: None)
  Receive Date: 20080311
  Receipt Date: 20080229
  Transmission Date: 20080703
  Serious: Yes (Disabling)
  Sender: FDA-Public Use
  Company Number: JP-ELI_LILLY_AND_COMPANY-JP200803001112

PATIENT
  Age: 75 Year
  Sex: Male

DRUGS (4)
  1. ZYPREXA [Suspect]
     Indication: SCHIZOPHRENIA
     Dosage: 5 MG, DAILY (1/D)
     Route: 048
     Dates: start: 20071023, end: 20080226
  2. AKINETON [Concomitant]
     Route: 065
  3. BIO THREE [Concomitant]
     Route: 048
  4. SENNOSIDE A [Concomitant]
     Route: 048

REACTIONS (2)
  - PHOTOPSIA [None]
  - VISION BLURRED [None]
